FAERS Safety Report 9218284 (Version 1)
Quarter: 2013Q2

REPORT INFORMATION
  Report Type: Spontaneous
  Country: JP (occurrence: JP)
  Receive Date: 20130409
  Receipt Date: 20130409
  Transmission Date: 20140414
  Serious: Yes (Hospitalization)
  Sender: FDA-Public Use
  Company Number: JP-009507513-1304JPN002948

PATIENT
  Age: 21 Year
  Sex: Male
  Weight: 57 kg

DRUGS (1)
  1. REMERON [Suspect]
     Indication: SUICIDAL BEHAVIOUR
     Dosage: UNK
     Route: 048

REACTIONS (1)
  - Encephalopathy [Recovering/Resolving]
